FAERS Safety Report 9268591 (Version 4)
Quarter: 2013Q2

REPORT INFORMATION
  Report Type: Spontaneous
  Country: US (occurrence: US)
  Receive Date: 20130502
  Receipt Date: 20130524
  Transmission Date: 20140414
  Serious: Yes (Death, Hospitalization, Other)
  Sender: FDA-Public Use
  Company Number: US-BAXTER-2013BAX015617

PATIENT
  Age: 59 Year
  Sex: Male

DRUGS (6)
  1. DIANEAL PD2 [Suspect]
     Indication: PERITONEAL DIALYSIS
     Route: 033
     Dates: end: 20130509
  2. DIANEAL PD2 [Suspect]
     Indication: PERITONEAL DIALYSIS
     Route: 033
     Dates: end: 20130509
  3. DIANEAL PD2 [Suspect]
     Indication: PERITONEAL DIALYSIS
     Route: 033
     Dates: end: 20130509
  4. DIANEAL PD2 (ULTRABAG) [Suspect]
     Indication: PERITONEAL DIALYSIS
     Route: 033
     Dates: end: 20130509
  5. DIANEAL PD2 (ULTRABAG) [Suspect]
     Indication: PERITONEAL DIALYSIS
     Route: 033
     Dates: end: 20130509
  6. OXYGEN [Concomitant]
     Indication: RESPIRATORY DISORDER
     Route: 065

REACTIONS (7)
  - Cardiac disorder [Fatal]
  - Respiratory failure [Fatal]
  - Renal cancer [Fatal]
  - Confusional state [Recovered/Resolved]
  - Blood glucose abnormal [Unknown]
  - Nutritional condition abnormal [Unknown]
  - Therapy cessation [Unknown]
